FAERS Safety Report 4854019-7 (Version None)
Quarter: 2005Q4

REPORT INFORMATION
  Report Type: 
  Country: None (occurrence: None)
  Receive Date: 20051214
  Receipt Date: 20051207
  Transmission Date: 20060501
  Serious: Yes (Hospitalization, Disabling)
  Sender: FDA-Public Use
  Company Number: US-MERCK-0512USA01505

PATIENT
  Age: 39 Year
  Sex: Female
  Weight: 50 kg

DRUGS (12)
  1. VIOXX [Suspect]
     Indication: RHEUMATOID ARTHRITIS
     Route: 048
     Dates: start: 20010906
  2. VIOXX [Suspect]
     Route: 048
     Dates: start: 20020901, end: 20030501
  3. VIOXX [Suspect]
     Route: 048
     Dates: start: 20030101, end: 20040204
  4. VIOXX [Suspect]
     Indication: PAIN
     Route: 048
     Dates: start: 20010906
  5. VIOXX [Suspect]
     Route: 048
     Dates: start: 20020901, end: 20030501
  6. VIOXX [Suspect]
     Route: 048
     Dates: start: 20030101, end: 20040204
  7. DOXEPIN HYDROCHLORIDE [Concomitant]
     Route: 065
  8. PLAQUENIL [Concomitant]
     Indication: SYSTEMIC LUPUS ERYTHEMATOSUS
     Route: 065
  9. HYDROXYZINE HYDROCHLORIDE [Concomitant]
     Route: 065
  10. ASPIRIN [Concomitant]
     Route: 065
  11. BETAMETHASONE [Concomitant]
     Route: 065
  12. [COMPOSITION UNSPECIFIED] [Concomitant]
     Route: 065

REACTIONS (8)
  - CEREBROVASCULAR ACCIDENT [None]
  - CONSTIPATION [None]
  - IRON DEFICIENCY ANAEMIA [None]
  - ISCHAEMIC STROKE [None]
  - LYMPHADENOPATHY [None]
  - MENINGITIS ASEPTIC [None]
  - MOUTH ULCERATION [None]
  - OVARIAN CYST [None]
